FAERS Safety Report 20391212 (Version 1)
Quarter: 2022Q1

REPORT INFORMATION
  Report Type: Spontaneous
  Country: CN (occurrence: CN)
  Receive Date: 20220128
  Receipt Date: 20220128
  Transmission Date: 20220424
  Serious: Yes (Hospitalization)
  Sender: FDA-Public Use
  Company Number: CN-ELI_LILLY_AND_COMPANY-CN202201009896

PATIENT
  Age: 71 Year
  Sex: Female
  Weight: 65 kg

DRUGS (1)
  1. HUMULIN 70/30 [Suspect]
     Active Substance: INSULIN HUMAN
     Indication: Diabetes mellitus
     Dosage: UNK UNK, BID
     Route: 058
     Dates: start: 2019

REACTIONS (2)
  - Diabetes mellitus inadequate control [Unknown]
  - Product dose omission issue [Unknown]
